FAERS Safety Report 9005366 (Version 2)
Quarter: 2013Q2

REPORT INFORMATION
  Report Type: Spontaneous
  Country: IT (occurrence: IT)
  Receive Date: 20130108
  Receipt Date: 20130401
  Transmission Date: 20140414
  Serious: Yes (Other)
  Sender: FDA-Public Use
  Company Number: PHHY2013IT001680

PATIENT
  Sex: Male

DRUGS (2)
  1. ZOMETA [Suspect]
     Indication: RENAL CANCER STAGE IV
     Dosage: 4 MG, MONTHLY
     Route: 042
     Dates: start: 20101001, end: 20120801
  2. SUTENT [Suspect]
     Indication: RENAL CANCER STAGE IV
     Dosage: 25 MG, CYCLIC
     Route: 048
     Dates: start: 20101001

REACTIONS (1)
  - Osteonecrosis of jaw [Not Recovered/Not Resolved]
